FAERS Safety Report 25285290 (Version 1)
Quarter: 2025Q2

REPORT INFORMATION
  Report Type: Spontaneous
  Country: US (occurrence: US)
  Receive Date: 20250509
  Receipt Date: 20250509
  Transmission Date: 20250717
  Serious: Yes (Other)
  Sender: COLLEGIUM PHARMACEUTICAL
  Company Number: US-COLLEGIUM PHARMACEUTICAL, INC.-20241000863

PATIENT

DRUGS (7)
  1. XTAMPZA ER [Suspect]
     Active Substance: OXYCODONE
     Indication: Back pain
     Route: 065
     Dates: start: 2019
  2. XTAMPZA ER [Suspect]
     Active Substance: OXYCODONE
     Indication: Nerve compression
  3. XTAMPZA ER [Suspect]
     Active Substance: OXYCODONE
     Indication: Spinal pain
  4. XTAMPZA ER [Suspect]
     Active Substance: OXYCODONE
     Indication: Intervertebral disc operation
  5. DONEPEZIL HYDROCHLORIDE [Concomitant]
     Active Substance: DONEPEZIL HYDROCHLORIDE
     Indication: Dementia
     Route: 065
  6. ATORVASTATIN [Concomitant]
     Active Substance: ATORVASTATIN
     Indication: Blood cholesterol abnormal
     Route: 065
  7. VITAMINS [Concomitant]
     Active Substance: VITAMINS
     Indication: Supplementation therapy
     Route: 065

REACTIONS (3)
  - Drug withdrawal syndrome [Unknown]
  - Product dose omission issue [Unknown]
  - Breakthrough pain [Unknown]

NARRATIVE: CASE EVENT DATE: 20240101
